FAERS Safety Report 7218866-9 (Version None)
Quarter: 2011Q1

REPORT INFORMATION
  Report Type: 
  Country: None (occurrence: None)
  Receive Date: 20110110
  Receipt Date: 20110103
  Transmission Date: 20110831
  Serious: Yes (Hospitalization)
  Sender: FDA-Public Use
  Company Number: US-GILEAD-2011-0035018

PATIENT
  Age: 75 Year
  Sex: Male

DRUGS (1)
  1. LETAIRIS [Suspect]
     Indication: PULMONARY ARTERIAL HYPERTENSION
     Dates: start: 20101208, end: 20101223

REACTIONS (4)
  - DYSPNOEA [None]
  - OEDEMA [None]
  - FLUID RETENTION [None]
  - UNEVALUABLE EVENT [None]
